FAERS Safety Report 25395630 (Version 1)
Quarter: 2025Q2

REPORT INFORMATION
  Report Type: Spontaneous
  Country: GB (occurrence: GB)
  Receive Date: 20250604
  Receipt Date: 20250604
  Transmission Date: 20250717
  Serious: Yes (Death, Life-Threatening, Other)
  Sender: MYLAN
  Company Number: None

PATIENT
  Age: 88 Year
  Sex: Male
  Weight: 66 kg

DRUGS (57)
  1. APIXABAN [Suspect]
     Active Substance: APIXABAN
     Indication: Atrial fibrillation
     Dosage: 5 MILLIGRAM, BID
  2. APIXABAN [Suspect]
     Active Substance: APIXABAN
     Dosage: 5 MILLIGRAM, BID
     Route: 065
  3. APIXABAN [Suspect]
     Active Substance: APIXABAN
     Dosage: 5 MILLIGRAM, BID
     Route: 065
  4. APIXABAN [Suspect]
     Active Substance: APIXABAN
     Dosage: 5 MILLIGRAM, BID
  5. ATORVASTATIN [Concomitant]
     Active Substance: ATORVASTATIN
     Dosage: 1 DOSAGE FORM, PM
  6. ATORVASTATIN [Concomitant]
     Active Substance: ATORVASTATIN
     Dosage: 1 DOSAGE FORM, PM
     Route: 065
  7. ATORVASTATIN [Concomitant]
     Active Substance: ATORVASTATIN
     Dosage: 1 DOSAGE FORM, PM
     Route: 065
  8. ATORVASTATIN [Concomitant]
     Active Substance: ATORVASTATIN
     Dosage: 1 DOSAGE FORM, PM
  9. LANSOPRAZOLE [Concomitant]
     Active Substance: LANSOPRAZOLE
     Dosage: 1 DOSAGE FORM, AM
  10. LANSOPRAZOLE [Concomitant]
     Active Substance: LANSOPRAZOLE
     Dosage: 1 DOSAGE FORM, AM
     Route: 065
  11. LANSOPRAZOLE [Concomitant]
     Active Substance: LANSOPRAZOLE
     Dosage: 1 DOSAGE FORM, AM
     Route: 065
  12. LANSOPRAZOLE [Concomitant]
     Active Substance: LANSOPRAZOLE
     Dosage: 1 DOSAGE FORM, AM
  13. DIGOXIN [Concomitant]
     Active Substance: DIGOXIN
     Dosage: 1 DOSAGE FORM, AM
  14. DIGOXIN [Concomitant]
     Active Substance: DIGOXIN
     Dosage: 1 DOSAGE FORM, AM
     Route: 065
  15. DIGOXIN [Concomitant]
     Active Substance: DIGOXIN
     Dosage: 1 DOSAGE FORM, AM
     Route: 065
  16. DIGOXIN [Concomitant]
     Active Substance: DIGOXIN
     Dosage: 1 DOSAGE FORM, AM
  17. FERROUS FUMARATE [Concomitant]
     Active Substance: FERROUS FUMARATE
     Dosage: 1 DOSAGE FORM, QD
  18. FERROUS FUMARATE [Concomitant]
     Active Substance: FERROUS FUMARATE
     Dosage: 1 DOSAGE FORM, QD
     Route: 065
  19. FERROUS FUMARATE [Concomitant]
     Active Substance: FERROUS FUMARATE
     Dosage: 1 DOSAGE FORM, QD
     Route: 065
  20. FERROUS FUMARATE [Concomitant]
     Active Substance: FERROUS FUMARATE
     Dosage: 1 DOSAGE FORM, QD
  21. Ultrabase [Concomitant]
     Indication: Dry skin
  22. Ultrabase [Concomitant]
     Indication: Skin fissures
     Route: 061
  23. Ultrabase [Concomitant]
     Indication: Pruritus
     Route: 061
  24. Ultrabase [Concomitant]
     Indication: Erythema
  25. Ultrabase [Concomitant]
     Indication: Product substitution
  26. CAFFEINE [Concomitant]
     Active Substance: CAFFEINE
  27. CAFFEINE [Concomitant]
     Active Substance: CAFFEINE
     Route: 065
  28. CAFFEINE [Concomitant]
     Active Substance: CAFFEINE
     Route: 065
  29. CAFFEINE [Concomitant]
     Active Substance: CAFFEINE
  30. TRIPTORELIN [Concomitant]
     Active Substance: TRIPTORELIN
  31. TRIPTORELIN [Concomitant]
     Active Substance: TRIPTORELIN
     Route: 065
  32. TRIPTORELIN [Concomitant]
     Active Substance: TRIPTORELIN
     Route: 065
  33. TRIPTORELIN [Concomitant]
     Active Substance: TRIPTORELIN
  34. LEVOTHYROXINE SODIUM [Concomitant]
     Active Substance: LEVOTHYROXINE SODIUM
     Dosage: 1 DOSAGE FORM, AM (PREFERABLY 30 - 60 MINUTES BEFORE BREAKFAST, CAFFEINE - CONTAINING DRINKS OR OTHER MEDICATION)
  35. LEVOTHYROXINE SODIUM [Concomitant]
     Active Substance: LEVOTHYROXINE SODIUM
     Dosage: 1 DOSAGE FORM, AM (PREFERABLY 30 - 60 MINUTES BEFORE BREAKFAST, CAFFEINE - CONTAINING DRINKS OR OTHER MEDICATION)
     Route: 065
  36. LEVOTHYROXINE SODIUM [Concomitant]
     Active Substance: LEVOTHYROXINE SODIUM
     Dosage: 1 DOSAGE FORM, AM (PREFERABLY 30 - 60 MINUTES BEFORE BREAKFAST, CAFFEINE - CONTAINING DRINKS OR OTHER MEDICATION)
     Route: 065
  37. LEVOTHYROXINE SODIUM [Concomitant]
     Active Substance: LEVOTHYROXINE SODIUM
     Dosage: 1 DOSAGE FORM, AM (PREFERABLY 30 - 60 MINUTES BEFORE BREAKFAST, CAFFEINE - CONTAINING DRINKS OR OTHER MEDICATION)
  38. BISOPROLOL [Concomitant]
     Active Substance: BISOPROLOL
     Dosage: 1 DOSAGE FORM, AM (IN ADDITION TO 2.5 MG DOSE)
     Route: 065
  39. BISOPROLOL [Concomitant]
     Active Substance: BISOPROLOL
     Dosage: 1 DOSAGE FORM, AM (IN ADDITION TO 2.5 MG DOSE)
  40. BISOPROLOL [Concomitant]
     Active Substance: BISOPROLOL
     Dosage: 1 DOSAGE FORM, AM (IN ADDITION TO 2.5 MG DOSE)
  41. BISOPROLOL [Concomitant]
     Active Substance: BISOPROLOL
     Dosage: 1 DOSAGE FORM, AM (IN ADDITION TO 2.5 MG DOSE)
     Route: 065
  42. BISOPROLOL [Concomitant]
     Active Substance: BISOPROLOL
     Route: 065
  43. BISOPROLOL [Concomitant]
     Active Substance: BISOPROLOL
  44. BISOPROLOL [Concomitant]
     Active Substance: BISOPROLOL
  45. BISOPROLOL [Concomitant]
     Active Substance: BISOPROLOL
     Route: 065
  46. OXYCODONE HYDROCHLORIDE [Concomitant]
     Active Substance: OXYCODONE HYDROCHLORIDE
     Dosage: 1 DOSAGE FORM, BID
  47. OXYCODONE HYDROCHLORIDE [Concomitant]
     Active Substance: OXYCODONE HYDROCHLORIDE
     Dosage: 1 DOSAGE FORM, BID
     Route: 065
  48. OXYCODONE HYDROCHLORIDE [Concomitant]
     Active Substance: OXYCODONE HYDROCHLORIDE
     Dosage: 1 DOSAGE FORM, BID
     Route: 065
  49. OXYCODONE HYDROCHLORIDE [Concomitant]
     Active Substance: OXYCODONE HYDROCHLORIDE
     Dosage: 1 DOSAGE FORM, BID
  50. POLYETHYLENE GLYCOL 3350\POTASSIUM CHLORIDE\SODIUM BICARBONATE\SODIUM [Concomitant]
     Active Substance: POLYETHYLENE GLYCOL 3350\POTASSIUM CHLORIDE\SODIUM BICARBONATE\SODIUM CHLORIDE
     Dosage: 1 DOSAGE FORM, QD (1 A DAY 30 SACHET-)
  51. POLYETHYLENE GLYCOL 3350\POTASSIUM CHLORIDE\SODIUM BICARBONATE\SODIUM [Concomitant]
     Active Substance: POLYETHYLENE GLYCOL 3350\POTASSIUM CHLORIDE\SODIUM BICARBONATE\SODIUM CHLORIDE
     Dosage: 1 DOSAGE FORM, QD (1 A DAY 30 SACHET-)
     Route: 065
  52. POLYETHYLENE GLYCOL 3350\POTASSIUM CHLORIDE\SODIUM BICARBONATE\SODIUM [Concomitant]
     Active Substance: POLYETHYLENE GLYCOL 3350\POTASSIUM CHLORIDE\SODIUM BICARBONATE\SODIUM CHLORIDE
     Dosage: 1 DOSAGE FORM, QD (1 A DAY 30 SACHET-)
     Route: 065
  53. POLYETHYLENE GLYCOL 3350\POTASSIUM CHLORIDE\SODIUM BICARBONATE\SODIUM [Concomitant]
     Active Substance: POLYETHYLENE GLYCOL 3350\POTASSIUM CHLORIDE\SODIUM BICARBONATE\SODIUM CHLORIDE
     Dosage: 1 DOSAGE FORM, QD (1 A DAY 30 SACHET-)
  54. BISOPROLOL [Concomitant]
     Active Substance: BISOPROLOL
     Dosage: 1 DOSAGE FORM, QD (ONE TO BE TAKEN EACH DAY IN ADDITION TO 2.5 MG DOSE)
  55. BISOPROLOL [Concomitant]
     Active Substance: BISOPROLOL
     Dosage: 1 DOSAGE FORM, QD (ONE TO BE TAKEN EACH DAY IN ADDITION TO 2.5 MG DOSE)
     Route: 065
  56. BISOPROLOL [Concomitant]
     Active Substance: BISOPROLOL
     Dosage: 1 DOSAGE FORM, QD (ONE TO BE TAKEN EACH DAY IN ADDITION TO 2.5 MG DOSE)
     Route: 065
  57. BISOPROLOL [Concomitant]
     Active Substance: BISOPROLOL
     Dosage: 1 DOSAGE FORM, QD (ONE TO BE TAKEN EACH DAY IN ADDITION TO 2.5 MG DOSE)

REACTIONS (1)
  - Haematuria [Fatal]
